FAERS Safety Report 21104984 (Version 2)
Quarter: 2022Q3

REPORT INFORMATION
  Report Type: Spontaneous
  Country: JP (occurrence: JP)
  Receive Date: 20220720
  Receipt Date: 20220819
  Transmission Date: 20221027
  Serious: Yes (Hospitalization, Other)
  Sender: FDA-Public Use
  Company Number: JP-JAZZ-2021-JP-010416

PATIENT
  Age: 41 Year
  Sex: Male
  Weight: 59.45 kg

DRUGS (2)
  1. DEFITELIO [Suspect]
     Active Substance: DEFIBROTIDE SODIUM
     Indication: Venoocclusive liver disease
     Dosage: 25 MILLIGRAM/KILOGRAM, (25 MG/KG/24 HOURS)
     Route: 042
     Dates: start: 20210206, end: 20210301
  2. FOSCAVIR [Concomitant]
     Active Substance: FOSCARNET SODIUM
     Indication: Product used for unknown indication
     Dosage: UNK
     Dates: start: 202102

REACTIONS (3)
  - Haemorrhage intracranial [Recovering/Resolving]
  - Encephalomyelitis viral [Recovering/Resolving]
  - Off label use [Unknown]

NARRATIVE: CASE EVENT DATE: 20210206
